FAERS Safety Report 20856183 (Version 3)
Quarter: 2022Q2

REPORT INFORMATION
  Report Type: Spontaneous
  Country: JP (occurrence: JP)
  Receive Date: 20220520
  Receipt Date: 20220613
  Transmission Date: 20220720
  Serious: Yes (Other)
  Sender: FDA-Public Use
  Company Number: JP-PFIZER INC-202200721267

PATIENT
  Age: 85 Year
  Sex: Female
  Weight: 43.2 kg

DRUGS (6)
  1. PAXLOVID [Suspect]
     Active Substance: NIRMATRELVIR\RITONAVIR
     Indication: COVID-19 treatment
     Dosage: [PF-07321332 300 MG]/[RITONAVIR 100 MG]; 2X/DAY
     Route: 048
     Dates: start: 20220514, end: 20220516
  2. CARBIDOPA\LEVODOPA [Concomitant]
     Active Substance: CARBIDOPA\LEVODOPA
     Indication: Parkinsonism
     Dosage: 100 MG, 3X/DAY
     Route: 048
     Dates: start: 20220428
  3. EPERISONE [Concomitant]
     Active Substance: EPERISONE
     Indication: Parkinsonism
     Dosage: 50 MG, 3X/DAY
     Route: 048
     Dates: start: 20220428
  4. POTASSIUM ASPARTATE [Concomitant]
     Active Substance: POTASSIUM ASPARTATE
     Indication: Hypokalaemia
     Dosage: 500 MG, 3X/DAY
     Route: 048
     Dates: start: 20220507, end: 20220512
  5. POTASSIUM ASPARTATE [Concomitant]
     Active Substance: POTASSIUM ASPARTATE
     Dosage: 500 MG, 3X/DAY
     Route: 048
     Dates: start: 20220517, end: 20220517
  6. POTASSIUM ASPARTATE [Concomitant]
     Active Substance: POTASSIUM ASPARTATE
     Dosage: 1000 MG, 3X/DAY
     Route: 048
     Dates: start: 20220518

REACTIONS (1)
  - Liver function test increased [Recovered/Resolved]

NARRATIVE: CASE EVENT DATE: 20220516
